FAERS Safety Report 22720736 (Version 2)
Quarter: 2024Q4

REPORT INFORMATION
  Report Type: Spontaneous
  Country: JP (occurrence: JP)
  Receive Date: 20230719
  Receipt Date: 20241113
  Transmission Date: 20250114
  Serious: Yes (Hospitalization)
  Sender: NOVO NORDISK
  Company Number: JP-NOVOPROD-1090930

PATIENT
  Age: 60 Year
  Sex: Female

DRUGS (1)
  1. SOGROYA [Suspect]
     Active Substance: SOMAPACITAN\SOMAPACITAN-BECO
     Indication: Growth hormone deficiency
     Dosage: 1.5 MG, QW
     Route: 058

REACTIONS (1)
  - COVID-19 [Unknown]
